FAERS Safety Report 13404551 (Version 1)
Quarter: 2017Q2

REPORT INFORMATION
  Report Type: Spontaneous
  Country: DK (occurrence: DK)
  Receive Date: 20170405
  Receipt Date: 20170405
  Transmission Date: 20170830
  Serious: Yes (Death, Life-Threatening, Hospitalization, Other)
  Sender: FDA-Public Use
  Company Number: DK-ACCORD-049851

PATIENT
  Age: 84 Year
  Sex: Male
  Weight: 98 kg

DRUGS (12)
  1. MORPHINE [Concomitant]
     Active Substance: MORPHINE
  2. TRANDOLAPRIL. [Suspect]
     Active Substance: TRANDOLAPRIL
     Route: 048
  3. NIFEDIPINE. [Suspect]
     Active Substance: NIFEDIPINE
     Route: 048
  4. MIRTAZAPINE. [Suspect]
     Active Substance: MIRTAZAPINE
     Route: 048
  5. IVABRADINE/IVABRADINE HYDROCHLORIDE [Suspect]
     Active Substance: IVABRADINE HYDROCHLORIDE
     Route: 048
  6. METOPROLOL. [Suspect]
     Active Substance: METOPROLOL
     Route: 048
  7. ACETYLSALICYLIC ACID [Suspect]
     Active Substance: ASPIRIN
     Route: 048
  8. LIDOCAINE/LIDOCAINE HYDROCHLORIDE [Concomitant]
  9. SIMVASTATIN. [Suspect]
     Active Substance: SIMVASTATIN
     Route: 048
  10. OXAZEPAM. [Suspect]
     Active Substance: OXAZEPAM
     Route: 048
  11. DIAZEPAM. [Concomitant]
     Active Substance: DIAZEPAM
  12. PARACETAMOL [Suspect]
     Active Substance: ACETAMINOPHEN
     Route: 048

REACTIONS (15)
  - Bezoar [Fatal]
  - Loss of consciousness [Unknown]
  - Respiratory disorder [Unknown]
  - Pneumonia aspiration [Unknown]
  - Suicide attempt [Unknown]
  - Mental status changes [Unknown]
  - Cardiovascular disorder [Unknown]
  - Oesophageal haemorrhage [None]
  - Completed suicide [None]
  - Hypotension [Unknown]
  - Oesophageal obstruction [Fatal]
  - Body temperature increased [Unknown]
  - Toxicity to various agents [Fatal]
  - Medication residue present [None]
  - Overdose [Fatal]
